FAERS Safety Report 7036225-9 (Version None)
Quarter: 2010Q4

REPORT INFORMATION
  Report Type: 
  Country: None (occurrence: None)
  Receive Date: 20101008
  Receipt Date: 20100927
  Transmission Date: 20110411
  Serious: Yes (Death, Other)
  Sender: FDA-Public Use
  Company Number: RS-TYCO HEALTHCARE/MALLINCKRODT-T201002051

PATIENT
  Age: 60 Year
  Sex: Female

DRUGS (9)
  1. EXALGO [Suspect]
     Indication: PAIN
     Dosage: 8 MG, SINGLE
     Route: 048
     Dates: start: 20100825, end: 20100904
  2. DICLOFENAC SODIUM [Concomitant]
     Indication: PAIN
     Dosage: 100 MG, 2 IN 1 DAY
     Route: 048
  3. DICLOFENAC SODIUM [Concomitant]
     Dosage: 75 MG
     Route: 042
  4. AMINOPHYLLINE [Concomitant]
     Indication: DYSPNOEA
     Dosage: UNK
     Route: 042
  5. AMINOPHYLLINE [Concomitant]
     Indication: RESPIRATORY FAILURE
  6. METHYLPREDNISOLONE [Concomitant]
     Indication: DYSPNOEA
     Dosage: UNK
  7. ENOXAPARIN SODIUM [Concomitant]
     Indication: EMBOLISM ARTERIAL
     Dosage: UNK
     Route: 058
  8. CIPROFLOXACIN [Concomitant]
     Indication: MASTOIDITIS
     Dosage: UNK
  9. VANCOMYCIN [Concomitant]
     Indication: MASTOIDITIS
     Dosage: UNK

REACTIONS (4)
  - DELUSION [None]
  - DISORIENTATION [None]
  - HALLUCINATION [None]
  - PSYCHOMOTOR HYPERACTIVITY [None]
